FAERS Safety Report 5077625-6 (Version None)
Quarter: 2006Q3

REPORT INFORMATION
  Report Type: 
  Country: None (occurrence: None)
  Receive Date: 20060810
  Receipt Date: 20060502
  Transmission Date: 20061208
  Serious: No
  Sender: FDA-Public Use
  Company Number: US-GLAXOSMITHKLINE-A0604056A

PATIENT
  Age: 75 Year
  Sex: Female

DRUGS (3)
  1. PAXIL [Suspect]
     Indication: ELECTROLYTE IMBALANCE
     Dosage: 20MG UNKNOWN
     Route: 048
  2. BLOOD PRESSURE MEDICATION [Concomitant]
  3. PREVACID [Concomitant]

REACTIONS (2)
  - DRUG INEFFECTIVE [None]
  - NAUSEA [None]
